FAERS Safety Report 9893302 (Version 1)
Quarter: 2014Q1

REPORT INFORMATION
  Report Type: Spontaneous
  Country: LT (occurrence: LT)
  Receive Date: 20140213
  Receipt Date: 20140213
  Transmission Date: 20141002
  Serious: Yes (Death, Other)
  Sender: FDA-Public Use
  Company Number: LT-ACCORD-021775

PATIENT
  Age: 49 Year
  Sex: Male

DRUGS (4)
  1. FLUOROURACIL [Suspect]
     Indication: RHABDOID TUMOUR
     Dosage: 4 CYCLES, FOLFIRI REGIMEN AND FOLFOX REGIMEN
  2. IRINOTECAN [Suspect]
     Indication: RHABDOID TUMOUR
     Dosage: 4 CYCLES, FOLFIRI REGIMEN, FOLFOX REGIMEN
  3. FOLINIC ACID [Suspect]
     Indication: RHABDOID TUMOUR
     Dosage: 4 CYCLES FOLFIRI REGIMEN, 4 CYCLE OF FOLFOX
  4. OXALIPLATIN [Suspect]
     Indication: RHABDOID TUMOUR
     Dosage: 4 CYCLES, FOLFOX REGIMEN

REACTIONS (3)
  - Ascites [Unknown]
  - Disease progression [Fatal]
  - Pneumonia [Unknown]
